FAERS Safety Report 25252950 (Version 2)
Quarter: 2025Q3

REPORT INFORMATION
  Report Type: Report from Study
  Country: US (occurrence: US)
  Receive Date: 20250430
  Receipt Date: 20250810
  Transmission Date: 20251020
  Serious: Yes (Other)
  Sender: ALEXION PHARMACEUTICALS
  Company Number: US-AstraZeneca-CH-00856647A

PATIENT
  Sex: Female

DRUGS (6)
  1. OLAPARIB [Suspect]
     Active Substance: OLAPARIB
     Indication: Ovarian cancer
     Dosage: 300 MILLIGRAM, BID
     Dates: start: 20250226, end: 20250414
  2. ELIQUIS [Concomitant]
     Active Substance: APIXABAN
  3. TELMISARTAN [Concomitant]
     Active Substance: TELMISARTAN
  4. VITAMIN C [Concomitant]
     Active Substance: ASCORBIC ACID
  5. IRON [Concomitant]
     Active Substance: IRON
  6. PROBIOTICS NOS [Concomitant]
     Active Substance: PROBIOTICS NOS

REACTIONS (1)
  - Renal impairment [Recovering/Resolving]
